FAERS Safety Report 17243067 (Version 1)
Quarter: 2020Q1

REPORT INFORMATION
  Report Type: Report from Study
  Country: GB (occurrence: GB)
  Receive Date: 20200107
  Receipt Date: 20200107
  Transmission Date: 20200409
  Serious: Yes (Hospitalization)
  Sender: FDA-Public Use
  Company Number: GB-GE HEALTHCARE LIFE SCIENCES-DATS-NO-1209C-0026

PATIENT

DRUGS (8)
  1. POTASSIUM IODATE [Concomitant]
     Active Substance: POTASSIUM IODATE
  2. MEMANTINE. [Concomitant]
     Active Substance: MEMANTINE
     Dosage: 7.5 MILLIGRAM,
     Dates: start: 20120328, end: 201204
  3. CLONAZEPAM. [Concomitant]
     Active Substance: CLONAZEPAM
     Dosage: .5 MILLIGRAM,
     Dates: start: 201201
  4. MEMANTINE. [Concomitant]
     Active Substance: MEMANTINE
     Dosage: 20 MILLIGRAM,
     Dates: start: 201204
  5. RIVASTIGMINE. [Concomitant]
     Active Substance: RIVASTIGMINE
     Dosage: BD, TWICE A DAY
     Dates: start: 201112, end: 201203
  6. MEMANTINE. [Concomitant]
     Active Substance: MEMANTINE
     Dosage: 5 MILLIGRAM,
     Dates: start: 20120225, end: 20120327
  7. DATSCAN [Suspect]
     Active Substance: IODINE\IOFLUPANE I-123
     Indication: SINGLE PHOTON EMISSION COMPUTERISED TOMOGRAM
     Dosage: 174.3 MBQ, SINGLE
     Route: 042
     Dates: start: 20120510, end: 20120510
  8. DATSCAN [Suspect]
     Active Substance: IODINE\IOFLUPANE I-123
     Indication: DEMENTIA WITH LEWY BODIES

REACTIONS (4)
  - Seizure [Unknown]
  - Magnetic resonance imaging abnormal [Unknown]
  - Hyponatraemia [Unknown]
  - Encephalitis [Unknown]

NARRATIVE: CASE EVENT DATE: 20120731
